FAERS Safety Report 7145070-5 (Version None)
Quarter: 2010Q4

REPORT INFORMATION
  Report Type: 
  Country: None (occurrence: None)
  Receive Date: 20101208
  Receipt Date: 20101126
  Transmission Date: 20110411
  Serious: Yes (Hospitalization, Other)
  Sender: FDA-Public Use
  Company Number: PHHY2010AU54247

PATIENT
  Sex: Female
  Weight: 117 kg

DRUGS (23)
  1. ACLASTA [Suspect]
     Indication: OSTEOPOROSIS
     Dosage: 5 MG
     Route: 042
     Dates: start: 20090501
  2. ACTOS [Concomitant]
  3. ASPIRIN [Concomitant]
     Dosage: 1 DAILY
  4. BETALOC [Concomitant]
     Dosage: HALF TWICE A DAY
  5. COVERSYL PLUS [Concomitant]
     Dosage: 1 IN MORNING
  6. DIABEX S.R. [Concomitant]
     Dosage: 1 TWICE A DAY
  7. FERROGRAD C [Concomitant]
     Dosage: 1 DAILY
  8. HUMALOG [Concomitant]
     Dosage: 100 IU/ML, UNK
  9. LANTUS [Concomitant]
     Dosage: 70 U,  BEFORE BED
  10. LASIX [Concomitant]
     Dosage: 1 DAILY
  11. LIPITOR [Concomitant]
     Dosage: 1 IN EVENING
  12. MAXOLON [Concomitant]
     Dosage: 1 EVERY 6 HOURS
  13. MOVICOL [Concomitant]
     Dosage: SIX ON 1 DAY REPEAT 48 HOURS LATER
  14. NASONEX [Concomitant]
     Dosage: 2 TWICE A DAY
  15. NEXIUM [Concomitant]
     Dosage: 1 IN MORNING
  16. OSTELIN [Concomitant]
     Dosage: 1 DAILY
  17. PANADOL OSTEO [Concomitant]
     Dosage: 2 THREE TIMES A DAY
  18. PLAQUENIL [Concomitant]
     Dosage: 2 DAILY
  19. PREDNISOLONE [Concomitant]
  20. PREMARIN [Concomitant]
     Dosage: 1 DAILY
  21. SLOW-K [Concomitant]
     Dosage: 2 DAILY
  22. ZANIDIP [Concomitant]
     Dosage: 1 IN MORNING
  23. ZANTAC [Concomitant]
     Dosage: 1 TWICE A DAY

REACTIONS (5)
  - BIFASCICULAR BLOCK [None]
  - DEHYDRATION [None]
  - HYPERSENSITIVITY [None]
  - INFLUENZA LIKE ILLNESS [None]
  - PAIN [None]
